FAERS Safety Report 12601849 (Version 7)
Quarter: 2017Q1

REPORT INFORMATION
  Report Type: Report from Study
  Country: CA (occurrence: CA)
  Receive Date: 20160728
  Receipt Date: 20170214
  Transmission Date: 20170428
  Serious: Yes (Other)
  Sender: FDA-Public Use
  Company Number: CA-JNJFOC-20160608880

PATIENT
  Age: 68 Year
  Sex: Male

DRUGS (4)
  1. ACETYLSALICYLIC ACID [Suspect]
     Active Substance: ASPIRIN
     Indication: PRODUCT USED FOR UNKNOWN INDICATION
     Route: 065
     Dates: end: 20160718
  2. IMBRUVICA [Suspect]
     Active Substance: IBRUTINIB
     Indication: CHRONIC LYMPHOCYTIC LEUKAEMIA
     Route: 048
     Dates: start: 20160601
  3. ACETYLSALICYLIC ACID [Suspect]
     Active Substance: ASPIRIN
     Indication: PRODUCT USED FOR UNKNOWN INDICATION
     Route: 065
  4. NEOCITRIN [Suspect]
     Active Substance: BACITRACIN\NEOMYCIN
     Indication: PRODUCT USED FOR UNKNOWN INDICATION
     Route: 065

REACTIONS (29)
  - Asthenia [Not Recovered/Not Resolved]
  - Joint stiffness [Not Recovered/Not Resolved]
  - Abnormal dreams [Unknown]
  - Muscle swelling [Not Recovered/Not Resolved]
  - Stomatitis [Not Recovered/Not Resolved]
  - Bronchitis [Not Recovered/Not Resolved]
  - Weight increased [Not Recovered/Not Resolved]
  - Haemorrhage urinary tract [Recovered/Resolved]
  - Skin cancer [Not Recovered/Not Resolved]
  - Peripheral swelling [Not Recovered/Not Resolved]
  - Joint swelling [Unknown]
  - Faeces soft [Unknown]
  - Joint swelling [Recovered/Resolved]
  - Paraesthesia [Recovering/Resolving]
  - Arthralgia [Not Recovered/Not Resolved]
  - Headache [Recovering/Resolving]
  - Myalgia [Not Recovered/Not Resolved]
  - Hypoaesthesia [Recovering/Resolving]
  - Cystoscopy abnormal [Not Recovered/Not Resolved]
  - Nasopharyngitis [Not Recovered/Not Resolved]
  - Tremor [Recovered/Resolved]
  - Fluid retention [Unknown]
  - Thirst [Not Recovered/Not Resolved]
  - Benign neoplasm of skin [Not Recovered/Not Resolved]
  - Blood urine present [Not Recovered/Not Resolved]
  - Haemorrhage [Recovered/Resolved]
  - Bradycardia [Unknown]
  - Contusion [Not Recovered/Not Resolved]
  - Joint swelling [Not Recovered/Not Resolved]

NARRATIVE: CASE EVENT DATE: 20160605
